FAERS Safety Report 4601497-4 (Version None)
Quarter: 2005Q1

REPORT INFORMATION
  Report Type: 
  Country: None (occurrence: None)
  Receive Date: 20050308
  Receipt Date: 20050225
  Transmission Date: 20050727
  Serious: Yes (Hospitalization)
  Sender: FDA-Public Use
  Company Number: US-ROCHE-397107

PATIENT
  Age: 18 Year
  Sex: Male

DRUGS (4)
  1. ACCUTANE [Suspect]
     Indication: DRUG USE FOR UNKNOWN INDICATION
     Dosage: PATIENT TOOK 20 CAPSULES AS AN OVERDOSE
     Route: 048
  2. ACCUTANE [Suspect]
     Route: 048
     Dates: start: 20041228, end: 20050115
  3. MELATONIN [Concomitant]
     Route: 048
  4. TYLENOL (CAPLET) [Concomitant]
     Dosage: PATIENT TOOK AN UNDISCLOSED AMOUNT AS AN OVERDOSE

REACTIONS (4)
  - INTENTIONAL MISUSE [None]
  - OVERDOSE [None]
  - SUICIDE ATTEMPT [None]
  - TREATMENT NONCOMPLIANCE [None]
